FAERS Safety Report 5449873-4 (Version None)
Quarter: 2007Q3

REPORT INFORMATION
  Report Type: 
  Country: None (occurrence: None)
  Receive Date: 20070907
  Receipt Date: 20070825
  Transmission Date: 20080115
  Serious: Yes (Death)
  Sender: FDA-Public Use
  Company Number: 2007S1000240

PATIENT

DRUGS (2)
  1. CUBICIN [Suspect]
     Indication: ENDOCARDITIS STAPHYLOCOCCAL
     Dosage: 5.5 MG/KG;Q24H;
  2. GENTAMICIN [Concomitant]

REACTIONS (1)
  - SURGERY [None]
